FAERS Safety Report 11668531 (Version 5)
Quarter: 2015Q4

REPORT INFORMATION
  Report Type: Spontaneous
  Country: US (occurrence: US)
  Receive Date: 20151027
  Receipt Date: 20151202
  Transmission Date: 20160304
  Serious: Yes (Hospitalization, Other)
  Sender: FDA-Public Use
  Company Number: US-PFIZER INC-2015361488

PATIENT
  Age: 75 Year
  Sex: Male
  Weight: 76 kg

DRUGS (8)
  1. POTASSIUM [Concomitant]
     Active Substance: POTASSIUM
     Dosage: 10MEQ 1 TABLET, TWICE A DAY
     Route: 048
  2. REVATIO [Suspect]
     Active Substance: SILDENAFIL CITRATE
     Indication: PULMONARY HYPERTENSION
     Dosage: 20 MG 4 TABLETS, 3X/DAY
     Route: 048
  3. FUROSEMIDE. [Concomitant]
     Active Substance: FUROSEMIDE
     Dosage: UNK
  4. EDECRIN /00020501/ [Concomitant]
     Indication: PULMONARY HYPERTENSION
     Dosage: 25MG 2 TABLETS, 1X/DAY
  5. WARFARIN [Concomitant]
     Active Substance: WARFARIN
     Indication: ANTICOAGULANT THERAPY
     Dosage: 5 MG, UNK
     Route: 048
  6. AMBIEN [Concomitant]
     Active Substance: ZOLPIDEM TARTRATE
     Indication: SLEEP DISORDER
     Dosage: 5 MG, 1X/DAY, AT NIGHT
  7. LEVOTHYROXINE. [Concomitant]
     Active Substance: LEVOTHYROXINE
     Dosage: 50 ?G, 1X/DAY
  8. ALLOPURINOL. [Concomitant]
     Active Substance: ALLOPURINOL
     Dosage: 300 MG, 1X/DAY

REACTIONS (4)
  - Femoral neck fracture [Recovering/Resolving]
  - Product use issue [Not Recovered/Not Resolved]
  - Drug effect incomplete [Not Recovered/Not Resolved]
  - Fall [Recovering/Resolving]

NARRATIVE: CASE EVENT DATE: 2014
